FAERS Safety Report 10233255 (Version 2)
Quarter: 2014Q2

REPORT INFORMATION
  Report Type: Report from Study
  Country: US (occurrence: US)
  Receive Date: 20140612
  Receipt Date: 20140624
  Transmission Date: 20141212
  Serious: Yes (Other)
  Sender: FDA-Public Use
  Company Number: PHHO2014US008097

PATIENT
  Age: 68 Year
  Sex: Male
  Weight: 84.7 kg

DRUGS (9)
  1. ATENOLOL [Suspect]
     Indication: HYPERTENSION
     Dosage: 12.5 MG, QD
     Dates: end: 20140529
  2. BLINDED ACZ885 [Suspect]
     Indication: INTERMITTENT CLAUDICATION
     Dosage: CODE NOT BROKEN
     Dates: start: 20140219
  3. BLINDED NO TREATMENT RECEIVED [Suspect]
     Indication: INTERMITTENT CLAUDICATION
     Dosage: CODE NOT BROKEN
     Dates: start: 20140219
  4. BLINDED PLACEBO [Suspect]
     Indication: INTERMITTENT CLAUDICATION
     Dosage: CODE NOT BROKEN
     Dates: start: 20140219
  5. CLOPIDOGREL [Concomitant]
     Indication: CARDIOVASCULAR EVENT PROPHYLAXIS
     Dosage: UNK
  6. ASPIRIN [Concomitant]
     Indication: CARDIOVASCULAR EVENT PROPHYLAXIS
     Dosage: UNK
  7. POTASSIUM CHLORIDE [Concomitant]
     Indication: SUPPLEMENTATION THERAPY
     Dosage: UNK
  8. HYDROCHLOROTHIAZIDE [Concomitant]
     Indication: HYPERTENSION
     Dosage: UNK
  9. SIMVASTATIN [Concomitant]
     Indication: HYPERCHOLESTEROLAEMIA
     Dosage: UNK

REACTIONS (2)
  - Bradycardia [Recovered/Resolved]
  - Abdominal pain upper [Not Recovered/Not Resolved]
